FAERS Safety Report 7432056-6 (Version None)
Quarter: 2011Q2

REPORT INFORMATION
  Report Type: 
  Country: None (occurrence: None)
  Receive Date: 20110419
  Receipt Date: 20110419
  Transmission Date: 20111010
  Serious: Yes (Other)
  Sender: FDA-Public Use
  Company Number: None

PATIENT
  Sex: Female
  Weight: 84.5505 kg

DRUGS (4)
  1. VICODIN ES [Suspect]
  2. DIAZEPAM [Suspect]
     Indication: ANXIETY
     Dosage: 10MG TID PO
     Route: 048
     Dates: start: 20040101, end: 20040201
  3. VALIUM [Suspect]
  4. HYDROCODONE BITARTRATE + ACETAMINOPHEN [Suspect]
     Indication: MYOSITIS
     Dosage: ONE PILL TID PO
     Route: 048
     Dates: start: 20040101, end: 20040201

REACTIONS (5)
  - PRODUCT SUBSTITUTION ISSUE [None]
  - ABDOMINAL DISTENSION [None]
  - VOMITING [None]
  - URTICARIA [None]
  - NAUSEA [None]
